FAERS Safety Report 4616145-7 (Version None)
Quarter: 2005Q1

REPORT INFORMATION
  Report Type: 
  Country: None (occurrence: None)
  Receive Date: 20050321
  Receipt Date: 20050310
  Transmission Date: 20050727
  Serious: Yes (Hospitalization)
  Sender: FDA-Public Use
  Company Number: 05-148

PATIENT
  Age: 61 Year
  Sex: Male

DRUGS (20)
  1. VERAPAMIL [Suspect]
     Indication: ANGINA PECTORIS
     Dosage: 1240 MG, 1 IN 1 D, ORAL
     Route: 048
     Dates: start: 20030701, end: 20031106
  2. VERAPAMIL [Suspect]
     Indication: ATRIAL FIBRILLATION
     Dosage: 1240 MG, 1 IN 1 D, ORAL
     Route: 048
     Dates: start: 20030701, end: 20031106
  3. VERAPAMIL [Suspect]
     Indication: MYOCARDIAL ISCHAEMIA
     Dosage: 1240 MG, 1 IN 1 D, ORAL
     Route: 048
     Dates: start: 20030701, end: 20031106
  4. ACETYL SALICYLIC ACID USP BAT [Suspect]
     Indication: PROPHYLAXIS
     Dosage: 100MG, 1 IN 1 D, ORAL
     Route: 048
     Dates: end: 20031030
  5. ACETYL SALICYLIC ACID USP BAT [Suspect]
     Indication: SHUNT OCCLUSION
     Dosage: 100MG, 1 IN 1 D, ORAL
     Route: 048
     Dates: end: 20031030
  6. TICLOPIDINE HCL [Suspect]
     Indication: PROPHYLAXIS
     Dosage: 200MG, 1 IN 1 D
     Route: 048
     Dates: end: 20031030
  7. TICLOPIDINE HCL [Suspect]
     Indication: SHUNT OCCLUSION
     Dosage: 200MG, 1 IN 1 D
     Route: 048
     Dates: end: 20031030
  8. EPOETIN ALFA [Concomitant]
  9. HEPARIN [Concomitant]
  10. NAFAMOSTAT MELISATE [Concomitant]
  11. CALCIUM CARBONATE [Concomitant]
  12. SODIUM POLYSTYRENE SULFONATE [Concomitant]
  13. NICORANDIL [Concomitant]
  14. ROXATIDINE ACETATE HCL [Concomitant]
  15. TRIAZOLAM [Concomitant]
  16. ETIZOLAM [Concomitant]
  17. APRIMDINE HYDROCHLORIDE [Concomitant]
  18. METILDIGON [Concomitant]
  19. SORBITOL [Concomitant]
  20. SEVELAMER HYDROCHLORIDE [Concomitant]

REACTIONS (5)
  - CERVICAL MYELOPATHY [None]
  - COLLAGEN DISORDER [None]
  - DEPRESSED LEVEL OF CONSCIOUSNESS [None]
  - PLATELET AGGREGATION INHIBITION [None]
  - PYREXIA [None]
